FAERS Safety Report 6392974-7 (Version None)
Quarter: 2009Q4

REPORT INFORMATION
  Report Type: 
  Country: None (occurrence: None)
  Receive Date: 20091008
  Receipt Date: 20091001
  Transmission Date: 20100525
  Serious: Yes (Life-Threatening, Hospitalization, Other)
  Sender: FDA-Public Use
  Company Number: US-BIOGENIDEC-2009BI031597

PATIENT
  Age: 23 Year
  Sex: Female
  Weight: 105 kg

DRUGS (2)
  1. TYSABRI [Suspect]
     Indication: MULTIPLE SCLEROSIS
     Route: 042
     Dates: start: 20050101, end: 20070725
  2. COPAXONE [Concomitant]
     Route: 058
     Dates: start: 20090724

REACTIONS (1)
  - YOLK SAC TUMOUR SITE UNSPECIFIED [None]
